FAERS Safety Report 9062270 (Version 1)
Quarter: 2013Q1

REPORT INFORMATION
  Report Type: Report from Study
  Country: CN (occurrence: CN)
  Receive Date: 20130128
  Receipt Date: 20130128
  Transmission Date: 20140127
  Serious: Yes (Death)
  Sender: FDA-Public Use
  Company Number: CN-ASTELLAS-2013JP000466

PATIENT
  Sex: Female

DRUGS (1)
  1. TACROLIMUS CAPSULES [Suspect]
     Route: 048

REACTIONS (1)
  - Death [Fatal]
